FAERS Safety Report 7063558-2 (Version None)
Quarter: 2010Q4

REPORT INFORMATION
  Report Type: 
  Country: None (occurrence: None)
  Receive Date: 20101026
  Receipt Date: 20100609
  Transmission Date: 20110411
  Serious: No
  Sender: FDA-Public Use
  Company Number: US-ABBOTT-10P-163-0651816-00

PATIENT
  Sex: Female
  Weight: 77.18 kg

DRUGS (2)
  1. LUPRON DEPOT [Suspect]
     Indication: ENDOMETRIOSIS
     Dates: start: 20100201
  2. SUBOXONE [Concomitant]
     Indication: ENDOMETRIOSIS

REACTIONS (7)
  - CRYING [None]
  - EMOTIONAL DISTRESS [None]
  - HOT FLUSH [None]
  - NAUSEA [None]
  - PANIC ATTACK [None]
  - VOMITING [None]
  - WEIGHT INCREASED [None]
